FAERS Safety Report 15223424 (Version 3)
Quarter: 2018Q3

REPORT INFORMATION
  Report Type: Spontaneous
  Country: BE (occurrence: BE)
  Receive Date: 20180731
  Receipt Date: 20180822
  Transmission Date: 20181010
  Serious: Yes (Hospitalization, Other)
  Sender: FDA-Public Use
  Company Number: BE-PFIZER INC-2018306298

PATIENT
  Sex: Male

DRUGS (4)
  1. CORDARONE [Suspect]
     Active Substance: AMIODARONE HYDROCHLORIDE
     Indication: ATRIAL FIBRILLATION
     Dosage: UNK
     Route: 065
     Dates: start: 201502, end: 201702
  2. STRUMAZOL [Suspect]
     Active Substance: METHIMAZOLE
     Dosage: UNK
     Route: 065
     Dates: start: 20180509, end: 20180611
  3. STRUMAZOL [Suspect]
     Active Substance: METHIMAZOLE
     Indication: BASEDOW^S DISEASE
     Dosage: UNK
     Route: 065
     Dates: start: 20170509
  4. SOTALOL. [Concomitant]
     Active Substance: SOTALOL
     Indication: ATRIAL FIBRILLATION
     Dosage: UNK
     Dates: start: 201703

REACTIONS (9)
  - Legionella infection [Unknown]
  - Nervousness [Unknown]
  - Headache [Unknown]
  - Diarrhoea [Unknown]
  - Respiration abnormal [Unknown]
  - Pneumonia [Unknown]
  - Basedow^s disease [Unknown]
  - Dyspnoea [Unknown]
  - Pyrexia [Unknown]

NARRATIVE: CASE EVENT DATE: 201703
